FAERS Safety Report 5493906-6 (Version None)
Quarter: 2007Q4

REPORT INFORMATION
  Report Type: 
  Country: None (occurrence: None)
  Receive Date: 20071019
  Receipt Date: 20071010
  Transmission Date: 20080405
  Serious: Yes (Other)
  Sender: FDA-Public Use
  Company Number: 06H-163-0310416

PATIENT

DRUGS (6)
  1. MARCAINE AND EPINEPHRINE [Suspect]
     Indication: PROCEDURAL PAIN
     Dosage: 25 ML, INTRA-ARTICULAR; 4.16 CC/HOUR, INTRA-ARTICULAR, 2 D
     Route: 014
  2. MARCAINE AND EPINEPHRINE [Suspect]
     Indication: SHOULDER OPERATION
     Dosage: 25 ML, INTRA-ARTICULAR; 4.16 CC/HOUR, INTRA-ARTICULAR, 2 D
     Route: 014
  3. MORPHINE SULFATE [Concomitant]
  4. KETOROLAC                 (KETOROLAC) [Concomitant]
  5. GLYCINE 1.5% [Concomitant]
  6. ANTIBIOTICS             (ANTIBIOTICS) [Concomitant]

REACTIONS (4)
  - CHONDROLYSIS [None]
  - PAIN [None]
  - SURGERY [None]
  - THERAPEUTIC RESPONSE DELAYED [None]
